FAERS Safety Report 7545782-5 (Version None)
Quarter: 2011Q2

REPORT INFORMATION
  Report Type: 
  Country: None (occurrence: None)
  Receive Date: 20110614
  Receipt Date: 20110608
  Transmission Date: 20111010
  Serious: Yes (Hospitalization)
  Sender: FDA-Public Use
  Company Number: CH-SANOFI-AVENTIS-2011SA036380

PATIENT
  Age: 45 Year
  Sex: Male

DRUGS (13)
  1. EMTRICITABINE AND TENOFOVIR DISOPROXIL FUMARATE [Concomitant]
     Route: 048
  2. ENOXAPARIN SODIUM [Suspect]
     Route: 058
     Dates: start: 20100101, end: 20100807
  3. ESOMEPRAZOLE MAGNESIUM [Concomitant]
     Route: 048
  4. KALETRA [Concomitant]
     Route: 048
  5. FRAGMIN [Suspect]
     Route: 058
     Dates: start: 20070101, end: 20100101
  6. ASPIRIN [Concomitant]
     Route: 048
  7. GYNO-TARDYFERON [Concomitant]
     Route: 048
  8. NOVALGIN [Concomitant]
     Route: 048
  9. OLFEN [Concomitant]
     Route: 048
  10. OXAZEPAM [Concomitant]
     Route: 048
  11. METHADONE HYDROCHLORIDE [Concomitant]
     Route: 048
  12. ACIDUM FOLICUM [Concomitant]
     Route: 048
  13. VENLAFAXINE HCL [Concomitant]
     Route: 048

REACTIONS (3)
  - OSTEOPOROTIC FRACTURE [None]
  - OSTEOPOROSIS [None]
  - FALL [None]
